FAERS Safety Report 5859992-6 (Version None)
Quarter: 2008Q3

REPORT INFORMATION
  Report Type: 
  Country: None (occurrence: None)
  Receive Date: 20080827
  Receipt Date: 20080818
  Transmission Date: 20090109
  Serious: Yes (Hospitalization, Disabling)
  Sender: FDA-Public Use
  Company Number: US-ELI_LILLY_AND_COMPANY-US200808004626

PATIENT
  Sex: Male
  Weight: 113.38 kg

DRUGS (9)
  1. BYETTA [Suspect]
     Indication: TYPE 2 DIABETES MELLITUS
     Dosage: 5 UG, 2/D
     Route: 058
     Dates: start: 20050101, end: 20050101
  2. BYETTA [Suspect]
     Dosage: 10 UG, 2/D
     Route: 058
     Dates: start: 20050101
  3. AVANDIA [Concomitant]
     Indication: DIABETES MELLITUS
     Dosage: UNK, UNKNOWN
  4. HUMULIN N [Concomitant]
     Indication: DIABETES MELLITUS
     Dosage: 70 U, 2/D
  5. HUMULIN 70/30 [Concomitant]
     Dosage: UNK, UNKNOWN
  6. METFORMIN HCL [Concomitant]
     Indication: DIABETES MELLITUS
     Dosage: UNK, UNKNOWN
  7. PLAVIX [Concomitant]
     Dosage: UNK, UNKNOWN
  8. ASPIRIN [Concomitant]
     Dosage: 325 MG, UNKNOWN
  9. DIOVAN [Concomitant]
     Dosage: UNK, UNKNOWN

REACTIONS (6)
  - BLOOD GLUCOSE FLUCTUATION [None]
  - CARDIAC DISORDER [None]
  - DYSPNOEA [None]
  - INCREASED APPETITE [None]
  - TREMOR [None]
  - WHEEZING [None]
